FAERS Safety Report 10730741 (Version 1)
Quarter: 2015Q1

REPORT INFORMATION
  Report Type: Spontaneous
  Country: IT (occurrence: IT)
  Receive Date: 20150122
  Receipt Date: 20150122
  Transmission Date: 20150721
  Serious: Yes (Other)
  Sender: FDA-Public Use
  Company Number: IT-PFIZER INC-2015023109

PATIENT
  Age: 55 Year
  Sex: Male
  Weight: 90 kg

DRUGS (2)
  1. TORVAST [Suspect]
     Active Substance: ATORVASTATIN
     Dosage: 40 MG, DAILY
     Route: 048
     Dates: start: 2010
  2. CARDIOASPIRIN [Concomitant]
     Active Substance: ASPIRIN
     Dosage: 100 MG, UNK
     Route: 048
     Dates: start: 2010

REACTIONS (8)
  - Myoglobin blood increased [Unknown]
  - Blood creatinine increased [Unknown]
  - Chromaturia [Recovered/Resolved]
  - Azotaemia [Unknown]
  - Blood creatine phosphokinase increased [Unknown]
  - Asthenia [Recovered/Resolved]
  - Pain in extremity [Recovered/Resolved]
  - Pyrexia [Recovered/Resolved]

NARRATIVE: CASE EVENT DATE: 20141216
